FAERS Safety Report 5421616-X (Version None)
Quarter: 2007Q3

REPORT INFORMATION
  Report Type: 
  Country: None (occurrence: None)
  Receive Date: 20070821
  Receipt Date: 20070809
  Transmission Date: 20080115
  Serious: Yes (Other)
  Sender: FDA-Public Use
  Company Number: CA-PFIZER INC-2007055853

PATIENT
  Age: 60 Year
  Sex: Male

DRUGS (11)
  1. DALACIN [Suspect]
     Indication: SKIN INFECTION
     Route: 048
     Dates: start: 20070703, end: 20070710
  2. ALLOPURINOL [Concomitant]
  3. LIPIDIL [Concomitant]
  4. MONOPRIL [Concomitant]
  5. LASIX [Concomitant]
  6. COREG [Concomitant]
  7. LANOXIN [Concomitant]
  8. NITRO-DUR [Concomitant]
  9. COUMADIN [Concomitant]
  10. POTASSIUM CHLORIDE [Concomitant]
  11. DIABETA [Concomitant]

REACTIONS (1)
  - BLOOD GLUCOSE INCREASED [None]
